FAERS Safety Report 6985688-3 (Version None)
Quarter: 2010Q3

REPORT INFORMATION
  Report Type: 
  Country: None (occurrence: None)
  Receive Date: 20100915
  Receipt Date: 20100803
  Transmission Date: 20110219
  Serious: No
  Sender: FDA-Public Use
  Company Number: US-BAXTER-2010BH003380

PATIENT
  Age: 53 Year
  Sex: Male
  Weight: 146 kg

DRUGS (17)
  1. HEPARIN SODIUM INJECTION [Suspect]
     Indication: HAEMODIALYSIS
     Route: 010
     Dates: start: 20080201
  2. HEPARIN SODIUM INJECTION [Suspect]
     Route: 042
     Dates: start: 20080218, end: 20080218
  3. HEPARIN SODIUM INJECTION [Suspect]
     Route: 042
     Dates: start: 20080220, end: 20080220
  4. HEPARIN SODIUM INJECTION [Suspect]
     Route: 042
     Dates: start: 20080222, end: 20080222
  5. HEPARIN SODIUM INJECTION [Suspect]
     Route: 042
     Dates: start: 20080225, end: 20080225
  6. HEPARIN SODIUM INJECTION [Suspect]
     Route: 042
     Dates: start: 20080227, end: 20080227
  7. HEPARIN SODIUM INJECTION [Suspect]
     Route: 042
     Dates: start: 20080229, end: 20080229
  8. HUMULIN 70/30 [Concomitant]
     Indication: PRODUCT USED FOR UNKNOWN INDICATION
     Route: 065
  9. TUMS [Concomitant]
     Indication: PRODUCT USED FOR UNKNOWN INDICATION
     Route: 065
  10. MULTI-VITAMINS [Concomitant]
     Indication: PRODUCT USED FOR UNKNOWN INDICATION
     Route: 048
  11. ATENOLOL [Concomitant]
     Indication: PRODUCT USED FOR UNKNOWN INDICATION
     Route: 065
  12. CARDIZEM CD [Concomitant]
     Indication: PRODUCT USED FOR UNKNOWN INDICATION
     Route: 065
  13. CLONIDINE [Concomitant]
     Indication: PRODUCT USED FOR UNKNOWN INDICATION
     Route: 065
  14. MICARDIS [Concomitant]
     Indication: PRODUCT USED FOR UNKNOWN INDICATION
     Route: 065
  15. PHOSLO [Concomitant]
     Indication: PRODUCT USED FOR UNKNOWN INDICATION
     Route: 065
  16. EPOGEN [Concomitant]
     Indication: PRODUCT USED FOR UNKNOWN INDICATION
     Route: 042
  17. IRON [Concomitant]
     Indication: PRODUCT USED FOR UNKNOWN INDICATION
     Route: 065

REACTIONS (3)
  - BACK PAIN [None]
  - RASH [None]
  - VISION BLURRED [None]
